FAERS Safety Report 10398183 (Version 1)
Quarter: 2014Q1

REPORT INFORMATION
  Report Type: Spontaneous
  Country: US (occurrence: None)
  Receive Date: 20130815
  Receipt Date: 20130815
  Transmission Date: 20141002
  Serious: Yes (Life-Threatening, Hospitalization, Other)
  Sender: FDA-Public Use
  Company Number: ADR-2012-01353

PATIENT
  Sex: Male

DRUGS (4)
  1. LIORESAL INTRATHECAL (BACLOFEN INJECTION) 2000 MCG/ML [Suspect]
     Indication: MUSCLE SPASTICITY
  2. LIORESAL INTRATHECAL (BACLOFEN INJECTION) 2000 MCG/ML [Suspect]
     Indication: SPINAL CORD INJURY
  3. ANTIBIOTIC [Concomitant]
  4. VALIUM [Concomitant]

REACTIONS (7)
  - Drug withdrawal syndrome [None]
  - Muscle spasticity [None]
  - Urinary tract infection [None]
  - Hyperhidrosis [None]
  - Tremor [None]
  - Pruritus [None]
  - Implant site extravasation [None]
